FAERS Safety Report 10055024 (Version 1)
Quarter: 2014Q2

REPORT INFORMATION
  Report Type: Spontaneous
  Country: US (occurrence: US)
  Receive Date: 20140402
  Receipt Date: 20140402
  Transmission Date: 20141212
  Serious: No
  Sender: FDA-Public Use
  Company Number: US-SA-2014SA028184

PATIENT
  Age: 53 Year
  Sex: Male

DRUGS (27)
  1. BACLOFEN [Concomitant]
  2. TRAZODONE [Concomitant]
  3. METOPROLOL SUCCINATE [Concomitant]
  4. OMEPRAZOLE [Concomitant]
     Dosage: DELAYED RELEASE CAPSULES
  5. MECLIZINE [Concomitant]
  6. COMBIVENT [Concomitant]
     Dosage: FORM: INHALER
  7. OXYCODONE [Concomitant]
  8. CORDRAN [Concomitant]
  9. OXYCONTIN [Concomitant]
  10. COPAXONE [Concomitant]
  11. CALCIUM/VITAMIN D [Concomitant]
     Dosage: 800
  12. CALCIUM/VITAMIN D [Concomitant]
     Dosage: CALCIUM 600+VIT D;
  13. VITAMIN B COMPLEX WITH C [Concomitant]
  14. MULTIVITAMINS [Concomitant]
  15. FISH OIL [Concomitant]
     Dosage: SOFT GEL
  16. VITAMIN D3 [Concomitant]
     Dosage: CVS VIT D3; SOFT GEL
  17. SCOPOLAMINE AMINOXIDE HYDROBROMIDE [Concomitant]
     Indication: SLEEP DISORDER
  18. RASPBERRY LEAF [Concomitant]
     Dosage: FORM: FLAVOR SOLUTION
  19. VICKS NYQUIL LIQUICAPS [Concomitant]
     Dosage: COLD AND FLU LIQUID
  20. ALL OTHER THERAPEUTIC PRODUCTS [Concomitant]
  21. AUBAGIO [Suspect]
     Indication: PRODUCT USED FOR UNKNOWN INDICATION
     Route: 065
  22. AMPYRA [Suspect]
     Indication: PRODUCT USED FOR UNKNOWN INDICATION
     Route: 048
     Dates: start: 20140103
  23. MEGESTROL ACETATE [Concomitant]
     Dosage: FORM: SUSPENSION
  24. NEURONTIN [Concomitant]
  25. CLONAZEPAM [Concomitant]
  26. TAMSULOSIN HYDROCHLORIDE [Concomitant]
  27. FINASTERIDE [Concomitant]

REACTIONS (7)
  - Muscular weakness [Unknown]
  - Mobility decreased [Unknown]
  - Constipation [Unknown]
  - Back pain [Unknown]
  - Pain in extremity [Unknown]
  - Musculoskeletal chest pain [Unknown]
  - Drug ineffective [Unknown]
